FAERS Safety Report 11836129 (Version 1)
Quarter: 2015Q4

REPORT INFORMATION
  Report Type: Spontaneous
  Country: US (occurrence: US)
  Receive Date: 20151215
  Receipt Date: 20151215
  Transmission Date: 20160305
  Serious: Yes (Other)
  Sender: FDA-Public Use
  Company Number: PHHY2015US159761

PATIENT
  Age: 78 Year
  Sex: Male

DRUGS (6)
  1. LEUPROLIDE//LEUPRORELIN [Concomitant]
     Indication: PROSTATE CANCER METASTATIC
     Route: 065
  2. CARVEDILOL. [Interacting]
     Active Substance: CARVEDILOL
     Indication: PROSTATE CANCER METASTATIC
     Route: 065
  3. DOCETAXEL. [Suspect]
     Active Substance: DOCETAXEL
     Dosage: 30 MG/M2, WEEKLY
     Route: 065
  4. DRONEDARONE [Interacting]
     Active Substance: DRONEDARONE
     Indication: PRODUCT USED FOR UNKNOWN INDICATION
     Route: 065
  5. BICALUTAMIDE. [Interacting]
     Active Substance: BICALUTAMIDE
     Indication: PROSTATE CANCER METASTATIC
     Route: 065
  6. DOCETAXEL. [Suspect]
     Active Substance: DOCETAXEL
     Indication: PROSTATE CANCER METASTATIC
     Dosage: 75 MG/M2, EVERY 3WEEK
     Route: 065

REACTIONS (2)
  - Cholangitis sclerosing [Unknown]
  - Drug interaction [Unknown]
